FAERS Safety Report 9157659 (Version 1)
Quarter: 2013Q1

REPORT INFORMATION
  Report Type: Spontaneous
  Country: US (occurrence: None)
  Receive Date: 20130213
  Receipt Date: 20130213
  Transmission Date: 20140127
  Serious: Yes (Other)
  Sender: FDA-Public Use
  Company Number: 2013MA000840

PATIENT
  Age: 74 Year
  Sex: Female

DRUGS (1)
  1. BACITRACIN ZIN [Suspect]
     Indication: ANTIBIOTIC PROPHYLAXIS
     Route: 061

REACTIONS (3)
  - Application site erythema [None]
  - Hypersensitivity [None]
  - Application site pruritus [None]
